FAERS Safety Report 9228341 (Version 2)
Quarter: 2013Q2

REPORT INFORMATION
  Report Type: Report from Study
  Country: US (occurrence: US)
  Receive Date: 20130412
  Receipt Date: 20130520
  Transmission Date: 20140414
  Serious: Yes (Other)
  Sender: FDA-Public Use
  Company Number: US-ROCHE-1208735

PATIENT
  Sex: 0

DRUGS (2)
  1. ALTEPLASE [Suspect]
     Indication: ARTERIAL OCCLUSIVE DISEASE
     Route: 065
  2. HEPARIN [Suspect]
     Indication: ARTERIAL OCCLUSIVE DISEASE
     Route: 065

REACTIONS (2)
  - Silent myocardial infarction [Unknown]
  - No therapeutic response [Unknown]
